FAERS Safety Report 15310210 (Version 1)
Quarter: 2018Q3

REPORT INFORMATION
  Report Type: Spontaneous
  Country: US (occurrence: US)
  Receive Date: 20180813
  Receipt Date: 20180813
  Transmission Date: 20181010
  Serious: No
  Sender: FDA-Public Use
  Company Number: None

PATIENT
  Age: 24 Year
  Sex: Male
  Weight: 77.4 kg

DRUGS (1)
  1. PREDNISONE , DO NOT HAVE ORIGINAL CONTAINER [Suspect]
     Active Substance: PREDNISONE
     Indication: COUGH
     Dosage: ?          QUANTITY:5 TABLET(S);?
     Route: 048

REACTIONS (11)
  - Tinea cruris [None]
  - Product quality issue [None]
  - Oral candidiasis [None]
  - Urinary tract infection [None]
  - Lung infection [None]
  - Pruritus genital [None]
  - Faeces discoloured [None]
  - Asthenia [None]
  - Tongue discolouration [None]
  - Eye pruritus [None]
  - Ear infection [None]

NARRATIVE: CASE EVENT DATE: 20180405
